FAERS Safety Report 17481112 (Version 1)
Quarter: 2020Q1

REPORT INFORMATION
  Report Type: Report from Study
  Country: US (occurrence: US)
  Receive Date: 20200302
  Receipt Date: 20200302
  Transmission Date: 20200409
  Serious: No
  Sender: FDA-Public Use
  Company Number: NVSC2020US057952

PATIENT
  Weight: 62 kg

DRUGS (1)
  1. ILARIS [Suspect]
     Active Substance: CANAKINUMAB
     Indication: AMYLOIDOSIS
     Dosage: 150 MG, QMO (VIAL)
     Route: 058

REACTIONS (1)
  - Drug ineffective [Not Recovered/Not Resolved]
